FAERS Safety Report 21360029 (Version 2)
Quarter: 2022Q4

REPORT INFORMATION
  Report Type: Spontaneous
  Country: US (occurrence: US)
  Receive Date: 20220921
  Receipt Date: 20221014
  Transmission Date: 20230112
  Serious: No
  Sender: FDA-Public Use
  Company Number: US-EXELIXIS-CABO-22055088

PATIENT
  Age: 75 Year
  Sex: Male
  Weight: 160.54 kg

DRUGS (2)
  1. OPDIVO [Suspect]
     Active Substance: NIVOLUMAB
     Indication: Renal cancer
     Dosage: UNK
     Route: 065
     Dates: end: 20220916
  2. CABOMETYX [Suspect]
     Active Substance: CABOZANTINIB S-MALATE
     Indication: Renal cancer
     Dosage: 40 MG, QD
     Route: 048
     Dates: start: 20220722

REACTIONS (8)
  - Mass [Unknown]
  - Hepatic enzyme increased [Unknown]
  - Dysphonia [Unknown]
  - Rash [Unknown]
  - Nausea [Unknown]
  - Pruritus [Unknown]
  - Blood pressure increased [Unknown]
  - Diarrhoea [Recovering/Resolving]

NARRATIVE: CASE EVENT DATE: 20220701
